FAERS Safety Report 24015859 (Version 1)
Quarter: 2024Q2

REPORT INFORMATION
  Report Type: Spontaneous
  Country: US (occurrence: US)
  Receive Date: 20240626
  Receipt Date: 20240626
  Transmission Date: 20240716
  Serious: No
  Sender: FDA-Public Use
  Company Number: US-MYLANLABS-2024M1055644

PATIENT
  Sex: Female
  Weight: 81.65 kg

DRUGS (1)
  1. ESTRADIOL TRANSDERMAL SYSTEM [Suspect]
     Active Substance: ESTRADIOL
     Indication: Menopause
     Dosage: 0.0375 MILLIGRAM, QD(ONCE-WEEKLY)
     Route: 062
     Dates: start: 20240506

REACTIONS (2)
  - Pruritus [Unknown]
  - Skin irritation [Unknown]
